FAERS Safety Report 15745899 (Version 1)
Quarter: 2018Q4

REPORT INFORMATION
  Report Type: Spontaneous
  Country: GB (occurrence: GB)
  Receive Date: 20181220
  Receipt Date: 20181220
  Transmission Date: 20190205
  Serious: Yes (Hospitalization, Other)
  Sender: FDA-Public Use
  Company Number: GB-MYLANLABS-2018M1091343

PATIENT
  Age: 75 Year
  Sex: Male

DRUGS (7)
  1. LEVOCETIRIZINE DIHYDROCHLORIDE. [Suspect]
     Active Substance: LEVOCETIRIZINE DIHYDROCHLORIDE
     Indication: PARKINSON^S DISEASE
     Dosage: 100 MILLIGRAM
  2. PRAMIPEXOLE. [Suspect]
     Active Substance: PRAMIPEXOLE
     Indication: PARKINSON^S DISEASE
     Dosage: 2.62 MILLIGRAM
  3. RASAGILINE MESILATE [Suspect]
     Active Substance: RASAGILINE MESYLATE
     Indication: PARKINSON^S DISEASE
     Dosage: 1 MILLIGRAM
  4. ATROPINE. [Suspect]
     Active Substance: ATROPINE
     Indication: DROOLING
     Dosage: 0.5 MILLILITER
     Route: 047
  5. ATROPINE. [Suspect]
     Active Substance: ATROPINE
     Indication: SALIVARY HYPERSECRETION
  6. LEVOCETIRIZINE DIHYDROCHLORIDE. [Suspect]
     Active Substance: LEVOCETIRIZINE DIHYDROCHLORIDE
     Dosage: 25 MILLIGRAM
  7. LEVOCETIRIZINE DIHYDROCHLORIDE. [Suspect]
     Active Substance: LEVOCETIRIZINE DIHYDROCHLORIDE
     Dosage: 200 UNK

REACTIONS (7)
  - Fall [Recovered/Resolved]
  - Gait disturbance [Recovered/Resolved]
  - Condition aggravated [Recovered/Resolved]
  - Dysarthria [Recovered/Resolved]
  - Delirium [Recovered/Resolved]
  - Road traffic accident [Recovered/Resolved]
  - Psychotic disorder [Recovered/Resolved]
